FAERS Safety Report 10195915 (Version 1)
Quarter: 2014Q2

REPORT INFORMATION
  Report Type: Spontaneous
  Country: US (occurrence: None)
  Receive Date: 20140522
  Receipt Date: 20140522
  Transmission Date: 20141212
  Serious: Yes (Hospitalization)
  Sender: FDA-Public Use
  Company Number: UNT-2014-000188

PATIENT
  Age: 61 Year
  Sex: Female
  Weight: 72.1 kg

DRUGS (4)
  1. TYVASO [Suspect]
     Indication: COR PULMONALE CHRONIC
     Route: 055
     Dates: start: 20130531
  2. TYVASO [Suspect]
     Indication: COR PULMONALE CHRONIC
     Route: 055
     Dates: start: 20130531
  3. REVATIO [Concomitant]
  4. WARFARIN SODIUM [Concomitant]

REACTIONS (2)
  - Drug dose omission [None]
  - Investigation [None]
